FAERS Safety Report 18998622 (Version 2)
Quarter: 2021Q1

REPORT INFORMATION
  Report Type: Spontaneous
  Country: US (occurrence: US)
  Receive Date: 20210311
  Receipt Date: 20210320
  Transmission Date: 20210420
  Serious: Yes (Other)
  Sender: FDA-Public Use
  Company Number: US-ASTRAZENECA-2021A107577

PATIENT
  Age: 36 Year
  Sex: Male
  Weight: 111.1 kg

DRUGS (79)
  1. PRILOSEC [Suspect]
     Active Substance: OMEPRAZOLE MAGNESIUM
     Indication: GASTROOESOPHAGEAL REFLUX DISEASE
     Route: 048
     Dates: start: 2010
  2. PRILOSEC [Suspect]
     Active Substance: OMEPRAZOLE MAGNESIUM
     Indication: GASTROOESOPHAGEAL REFLUX DISEASE
     Dosage: GENERIC
     Route: 065
     Dates: start: 2015
  3. PRILOSEC OTC [Suspect]
     Active Substance: OMEPRAZOLE MAGNESIUM
     Indication: GASTROOESOPHAGEAL REFLUX DISEASE
     Route: 048
     Dates: start: 2010
  4. PROTONIX [Suspect]
     Active Substance: PANTOPRAZOLE SODIUM
     Indication: GASTROOESOPHAGEAL REFLUX DISEASE
     Route: 065
     Dates: start: 2010, end: 2015
  5. ZEGERID [Suspect]
     Active Substance: OMEPRAZOLE\SODIUM BICARBONATE
     Indication: GASTROOESOPHAGEAL REFLUX DISEASE
     Route: 065
     Dates: start: 2010
  6. MORPHINE SULFATE. [Concomitant]
     Active Substance: MORPHINE SULFATE
     Indication: PAIN
     Dates: start: 20150203, end: 20150503
  7. CLONIDINE. [Concomitant]
     Active Substance: CLONIDINE
  8. ISOSORBIDE MONONITRATE. [Concomitant]
     Active Substance: ISOSORBIDE MONONITRATE
  9. GABAPENTIN. [Concomitant]
     Active Substance: GABAPENTIN
  10. PENICILLIN VK [Concomitant]
     Active Substance: PENICILLIN V POTASSIUM
  11. GLUCAGON. [Concomitant]
     Active Substance: GLUCAGON
  12. AZACTAM [Concomitant]
     Active Substance: AZTREONAM
  13. HYDROXYZINE PAMOATE. [Concomitant]
     Active Substance: HYDROXYZINE PAMOATE
  14. COLACE [Concomitant]
     Active Substance: DOCUSATE SODIUM
  15. FLOMAX [Concomitant]
     Active Substance: TAMSULOSIN HYDROCHLORIDE
  16. VITAMIN A [Concomitant]
     Active Substance: VITAMIN A
  17. PHENAZOPYRIDINE. [Concomitant]
     Active Substance: PHENAZOPYRIDINE
  18. PRILOSEC [Suspect]
     Active Substance: OMEPRAZOLE MAGNESIUM
     Indication: GASTROOESOPHAGEAL REFLUX DISEASE
     Route: 048
     Dates: start: 2010
  19. PRILOSEC [Suspect]
     Active Substance: OMEPRAZOLE MAGNESIUM
     Indication: GASTROOESOPHAGEAL REFLUX DISEASE
     Dosage: GENERIC
     Route: 065
     Dates: start: 2015
  20. PROTONIX [Suspect]
     Active Substance: PANTOPRAZOLE SODIUM
     Indication: GASTROOESOPHAGEAL REFLUX DISEASE
     Dosage: GENERIC
     Route: 065
     Dates: start: 2019
  21. TYLENOL [Concomitant]
     Active Substance: ACETAMINOPHEN
     Indication: PAIN
  22. MORPHINE [Concomitant]
     Active Substance: MORPHINE
  23. CUBICIN [Concomitant]
     Active Substance: DAPTOMYCIN
  24. METOPROLOL SUCCINATE. [Concomitant]
     Active Substance: METOPROLOL SUCCINATE
  25. CYMBALTA [Concomitant]
     Active Substance: DULOXETINE HYDROCHLORIDE
  26. PEPTO?BISMOL [Concomitant]
     Active Substance: BISMUTH SUBSALICYLATE
  27. ATORVASTATIN [Concomitant]
     Active Substance: ATORVASTATIN
  28. CEPHALEXIN. [Concomitant]
     Active Substance: CEPHALEXIN
  29. FUROSEMIDE. [Concomitant]
     Active Substance: FUROSEMIDE
  30. WELLBUTRIN [Concomitant]
     Active Substance: BUPROPION HYDROCHLORIDE
  31. VANCOMYCIN HYDROCHLORIDE. [Concomitant]
     Active Substance: VANCOMYCIN HYDROCHLORIDE
  32. ONDANSETRON HYDROCHLORIDE. [Concomitant]
     Active Substance: ONDANSETRON HYDROCHLORIDE
  33. POLYETHYLENE GLYCOL [Concomitant]
     Active Substance: POLYETHYLENE GLYCOLS
  34. SIMETHICONE (DIMETHICONE) [Concomitant]
     Active Substance: DIMETHICONE
  35. NOVOLIN NOS [Concomitant]
     Active Substance: INSULIN HUMAN
  36. PHENYLEPHRINE [Concomitant]
     Active Substance: PHENYLEPHRINE HYDROCHLORIDE
  37. ASPIRIN. [Concomitant]
     Active Substance: ASPIRIN
  38. DIPHENHIST [Concomitant]
     Active Substance: DIPHENHYDRAMINE HYDROCHLORIDE
  39. PHENERGAN [Concomitant]
     Active Substance: PROMETHAZINE HYDROCHLORIDE
  40. METHADONE HYDROCHLORIDE. [Concomitant]
     Active Substance: METHADONE HYDROCHLORIDE
  41. DEXTROSE. [Concomitant]
     Active Substance: DEXTROSE
  42. MAGNESIUM SULFATE. [Concomitant]
     Active Substance: MAGNESIUM SULFATE
  43. SENNA [Concomitant]
     Active Substance: SENNA LEAF\SENNOSIDES\SENNOSIDES A AND B
  44. PEPCID [Concomitant]
     Active Substance: FAMOTIDINE
  45. SUCRALFATE. [Concomitant]
     Active Substance: SUCRALFATE
  46. WARFARIN [Concomitant]
     Active Substance: WARFARIN
  47. BENADRYL [Concomitant]
     Active Substance: DIPHENHYDRAMINE HYDROCHLORIDE
  48. VITAMIN B12 [Concomitant]
     Active Substance: CYANOCOBALAMIN
  49. MEPERIDINE [Concomitant]
     Active Substance: MEPERIDINE
  50. METOPROLOL. [Concomitant]
     Active Substance: METOPROLOL
  51. INSULIN [Concomitant]
     Active Substance: INSULIN NOS
  52. MULTIVITAMINS [Concomitant]
     Active Substance: VITAMINS
  53. METOPROLOL TARTRATE. [Concomitant]
     Active Substance: METOPROLOL TARTRATE
  54. LORAZEPAM. [Concomitant]
     Active Substance: LORAZEPAM
  55. SODIUM CHLORIDE. [Concomitant]
     Active Substance: SODIUM CHLORIDE
  56. HYDROMORPHONE HYDROCHLORIDE. [Concomitant]
     Active Substance: HYDROMORPHONE HYDROCHLORIDE
  57. AMLODIPINE BESYLATE. [Concomitant]
     Active Substance: AMLODIPINE BESYLATE
  58. PROPOFOL. [Concomitant]
     Active Substance: PROPOFOL
  59. ZEGERID [Suspect]
     Active Substance: OMEPRAZOLE\SODIUM BICARBONATE
     Indication: GASTROOESOPHAGEAL REFLUX DISEASE
     Route: 065
     Dates: start: 2010
  60. MILK OF MAGNESIA [Concomitant]
     Active Substance: MAGNESIUM HYDROXIDE
  61. NITROGLYCERIN. [Concomitant]
     Active Substance: NITROGLYCERIN
  62. OXYCODONE [Concomitant]
     Active Substance: OXYCODONE
  63. FLAGYL [Concomitant]
     Active Substance: METRONIDAZOLE\METRONIDAZOLE HYDROCHLORIDE
  64. ERYTHROMYCIN. [Concomitant]
     Active Substance: ERYTHROMYCIN
  65. METHADONE [Concomitant]
     Active Substance: METHADONE HYDROCHLORIDE
  66. FEBERGRIN [Concomitant]
  67. CYCLOBENZAPRINE HYDROCHLORIDE. [Concomitant]
     Active Substance: CYCLOBENZAPRINE HYDROCHLORIDE
  68. PRILOSEC OTC [Suspect]
     Active Substance: OMEPRAZOLE MAGNESIUM
     Indication: GASTROOESOPHAGEAL REFLUX DISEASE
     Route: 048
     Dates: start: 2010
  69. PROTONIX [Suspect]
     Active Substance: PANTOPRAZOLE SODIUM
     Indication: GASTROOESOPHAGEAL REFLUX DISEASE
     Route: 065
     Dates: start: 2010, end: 2015
  70. PROTONIX [Suspect]
     Active Substance: PANTOPRAZOLE SODIUM
     Indication: GASTROOESOPHAGEAL REFLUX DISEASE
     Dosage: GENERIC
     Route: 065
     Dates: start: 2019
  71. AMLODIPINE [Concomitant]
     Active Substance: AMLODIPINE BESYLATE
     Indication: HYPERTENSION
     Dates: start: 20160926
  72. MAALOX ANTACID [Concomitant]
     Active Substance: ALUMINUM HYDROXIDE\DIMETHICONE\MAGNESIUM HYDROXIDE
  73. PROMETHAZINE [Concomitant]
     Active Substance: PROMETHAZINE HYDROCHLORIDE
  74. LEVEMIR [Concomitant]
     Active Substance: INSULIN DETEMIR
  75. COLLAGENASE [Concomitant]
     Active Substance: COLLAGENASE CLOSTRIDIUM HISTOLYTICUM
  76. EPOETIN [Concomitant]
     Active Substance: ERYTHROPOIETIN
  77. BISACODYL. [Concomitant]
     Active Substance: BISACODYL
  78. NIFEDIPINE. [Concomitant]
     Active Substance: NIFEDIPINE
  79. PYRIDIUM [Concomitant]
     Active Substance: PHENAZOPYRIDINE

REACTIONS (6)
  - End stage renal disease [Unknown]
  - Nephrogenic anaemia [Unknown]
  - Chronic kidney disease [Not Recovered/Not Resolved]
  - Acute kidney injury [Not Recovered/Not Resolved]
  - Renal failure [Unknown]
  - Renal tubular necrosis [Unknown]

NARRATIVE: CASE EVENT DATE: 2011
